FAERS Safety Report 4623104-7 (Version None)
Quarter: 2005Q1

REPORT INFORMATION
  Report Type: 
  Country: None (occurrence: None)
  Receive Date: 20050328
  Receipt Date: 20050328
  Transmission Date: 20050727
  Serious: Yes (Death)
  Sender: FDA-Public Use
  Company Number: None

PATIENT
  Age: 68 Year
  Sex: Female

DRUGS (2)
  1. GEMCITABINE [Suspect]
     Indication: METASTASES TO LIVER
     Dosage: QWK  IV
     Route: 042
     Dates: start: 20050202, end: 20050308
  2. GEMCITABINE [Suspect]
     Indication: PANCREATIC CARCINOMA METASTATIC
     Dosage: QWK  IV
     Route: 042
     Dates: start: 20050202, end: 20050308

REACTIONS (7)
  - ASCITES [None]
  - CELLULITIS [None]
  - GENERAL PHYSICAL HEALTH DETERIORATION [None]
  - HYPOPROTEINAEMIA [None]
  - ORAL INTAKE REDUCED [None]
  - PAIN [None]
  - RENAL FAILURE ACUTE [None]
